FAERS Safety Report 16057031 (Version 1)
Quarter: 2019Q1

REPORT INFORMATION
  Report Type: Spontaneous
  Country: US (occurrence: US)
  Receive Date: 20190209
  Receipt Date: 20190209
  Transmission Date: 20190418
  Serious: No
  Sender: FDA-Public Use
  Company Number: None

PATIENT
  Age: 57 Year
  Sex: Female

DRUGS (1)
  1. SOFOSB/VELPAT 400-100MG (X14) [Suspect]
     Active Substance: SOFOSBUVIR\VELPATASVIR
     Dates: start: 20190110

REACTIONS (1)
  - Fatigue [None]

NARRATIVE: CASE EVENT DATE: 20190209
